FAERS Safety Report 7834086-9 (Version None)
Quarter: 2011Q4

REPORT INFORMATION
  Report Type: 
  Country: None (occurrence: None)
  Receive Date: 20111024
  Receipt Date: 20111024
  Transmission Date: 20120403
  Serious: Yes (Other)
  Sender: FDA-Public Use
  Company Number: None

PATIENT
  Sex: Female
  Weight: 122.46 kg

DRUGS (1)
  1. SAVELLA [Suspect]
     Indication: PAIN
     Dosage: 100MG
     Route: 048

REACTIONS (3)
  - URINARY RETENTION [None]
  - MUSCLE SPASMS [None]
  - CYSTITIS [None]
